APPROVED DRUG PRODUCT: SOLIFENACIN SUCCINATE
Active Ingredient: SOLIFENACIN SUCCINATE
Strength: 5MG
Dosage Form/Route: TABLET;ORAL
Application: A211622 | Product #001
Applicant: LANNETT CO INC
Approved: Jun 6, 2023 | RLD: No | RS: No | Type: DISCN